FAERS Safety Report 7772897-9 (Version None)
Quarter: 2011Q3

REPORT INFORMATION
  Report Type: 
  Country: None (occurrence: None)
  Receive Date: 20110922
  Receipt Date: 20110909
  Transmission Date: 20111222
  Serious: No
  Sender: FDA-Public Use
  Company Number: US-B.I. PHARMACEUTICALS,INC./RIDGEFIELD-2011-BP-21824BP

PATIENT
  Sex: Female

DRUGS (3)
  1. PRADAXA [Suspect]
     Indication: ATRIAL FIBRILLATION
     Dosage: 300 MG
     Route: 048
     Dates: start: 20110106, end: 20110822
  2. COZAAR [Suspect]
     Indication: HYPERTENSION
     Dosage: 25 MG
     Route: 048
     Dates: start: 20110501
  3. LASIX [Suspect]
     Indication: OEDEMA
     Route: 048

REACTIONS (7)
  - JOINT SWELLING [None]
  - GASTROOESOPHAGEAL REFLUX DISEASE [None]
  - DISTURBANCE IN ATTENTION [None]
  - BLOOD PRESSURE INCREASED [None]
  - BACK PAIN [None]
  - ABDOMINAL DISTENSION [None]
  - WEIGHT DECREASED [None]
